FAERS Safety Report 9606010 (Version 2)
Quarter: 2015Q2

REPORT INFORMATION
  Report Type: Spontaneous
  Country: IL (occurrence: IL)
  Receive Date: 20131008
  Receipt Date: 20150521
  Transmission Date: 20150821
  Serious: Yes (Death, Hospitalization, Other)
  Sender: FDA-Public Use
  Company Number: PHHY2013IL109386

PATIENT
  Age: 75 Year
  Sex: Female

DRUGS (1)
  1. METHOTREXATE [Suspect]
     Active Substance: METHOTREXATE
     Indication: RHEUMATOID ARTHRITIS
     Dosage: 10 MG, QD INSTEAD OF A WEEKLY DOSE
     Route: 065

REACTIONS (12)
  - Accidental overdose [Unknown]
  - Terminal state [Fatal]
  - Septic shock [Fatal]
  - Respiratory failure [Unknown]
  - Platelet count decreased [Unknown]
  - White blood cell count decreased [Unknown]
  - Mucosal inflammation [Unknown]
  - Pruritus [Unknown]
  - Incorrect dose administered [Unknown]
  - Multi-organ failure [Fatal]
  - Acute kidney injury [Unknown]
  - Abdominal pain [Unknown]
